FAERS Safety Report 7577418-1 (Version None)
Quarter: 2011Q2

REPORT INFORMATION
  Report Type: 
  Country: None (occurrence: None)
  Receive Date: 20110628
  Receipt Date: 20070822
  Transmission Date: 20111010
  Serious: Yes (Death, Other)
  Sender: FDA-Public Use
  Company Number: US-BAYER-200712858BWH

PATIENT
  Age: 71 Year
  Sex: Male
  Weight: 89 kg

DRUGS (13)
  1. TRASYLOL [Suspect]
     Indication: TRICUSPID VALVE REPAIR
     Dosage: 1 ML TEST DOSE
     Route: 042
     Dates: start: 20061121, end: 20061121
  2. LISINOPRIL [Concomitant]
     Dosage: 12.5 MG, QD
     Route: 048
  3. FUROSEMIDE [Concomitant]
     Dosage: UNK
     Route: 042
     Dates: start: 20061121
  4. CEFUROXIME [Concomitant]
     Dosage: 3G
     Route: 042
     Dates: start: 20061121
  5. MIDAZOLAM HCL [Concomitant]
     Dosage: UNK
     Route: 042
     Dates: start: 20061121
  6. ACETAMINOPHEN [Concomitant]
     Dosage: AS NEEDED
     Route: 048
  7. HEPARIN [Concomitant]
     Dosage: UNK
     Route: 042
     Dates: start: 20061121
  8. LEVOPHED [Concomitant]
     Dosage: UNK
     Route: 042
     Dates: start: 20061121
  9. TRASYLOL [Suspect]
     Indication: CORONARY ARTERY BYPASS
     Dosage: 200 ML LOADING DOSE
     Route: 042
     Dates: start: 20061121, end: 20061121
  10. TRASYLOL [Suspect]
     Indication: AORTIC VALVE REPLACEMENT
     Dosage: 50ML/HR
     Route: 042
     Dates: start: 20061121, end: 20061121
  11. FUROSEMIDE [Concomitant]
     Dosage: 20 MG, QD
     Route: 048
  12. POTASSIUM [Concomitant]
     Dosage: 10 MEQ, BID
     Route: 048
  13. NEXIUM [Concomitant]
     Dosage: DAILY
     Route: 048

REACTIONS (10)
  - RENAL FAILURE [None]
  - INJURY [None]
  - ANXIETY [None]
  - EMOTIONAL DISTRESS [None]
  - ANHEDONIA [None]
  - DEATH [None]
  - FEAR [None]
  - DEPRESSION [None]
  - ILL-DEFINED DISORDER [None]
  - PAIN [None]
